FAERS Safety Report 7770302-X (Version None)
Quarter: 2011Q3

REPORT INFORMATION
  Report Type: 
  Country: None (occurrence: None)
  Receive Date: 20110922
  Receipt Date: 20100805
  Transmission Date: 20111222
  Serious: No
  Sender: FDA-Public Use
  Company Number: US-ASTRAZENECA-2010SE36816

PATIENT
  Sex: Male
  Weight: 130.6 kg

DRUGS (2)
  1. SEROQUEL [Suspect]
     Indication: SCHIZOPHRENIA
     Dosage: 10 TO 100MG TABLET DAILY
     Route: 048
     Dates: start: 20070101
  2. ZOLOFT [Concomitant]

REACTIONS (6)
  - NERVOUSNESS [None]
  - IRRITABILITY [None]
  - INSOMNIA [None]
  - TREMOR [None]
  - DEPRESSION [None]
  - DRUG DOSE OMISSION [None]
